FAERS Safety Report 7137653-3 (Version None)
Quarter: 2010Q4

REPORT INFORMATION
  Report Type: 
  Country: None (occurrence: None)
  Receive Date: 20101103
  Receipt Date: 20100520
  Transmission Date: 20110411
  Serious: Yes (Other)
  Sender: FDA-Public Use
  Company Number: 2010S1000378

PATIENT
  Age: 68 Year
  Sex: Female
  Weight: 97 kg

DRUGS (16)
  1. CUBICIN [Suspect]
     Indication: DIABETIC FOOT
     Dosage: 7.2 MG/KG;Q48H;IV
     Route: 042
     Dates: start: 20100414, end: 20100425
  2. CUBICIN [Suspect]
     Indication: OSTEOMYELITIS
     Dosage: 7.2 MG/KG;Q48H;IV
     Route: 042
     Dates: start: 20100414, end: 20100425
  3. CUBICIN [Suspect]
     Indication: WOUND INFECTION STAPHYLOCOCCAL
     Dosage: 7.2 MG/KG;Q48H;IV
     Route: 042
     Dates: start: 20100414, end: 20100425
  4. HUMALOG [Concomitant]
  5. CLEXANE [Concomitant]
  6. CARDOPAX [Concomitant]
  7. FERROUS SULFATE [Concomitant]
  8. BISOPROLOL [Concomitant]
  9. LEVOTHYROXINE [Concomitant]
  10. FOLIC ACID [Concomitant]
  11. ASPIRIN [Concomitant]
  12. BACTRIN [Concomitant]
  13. OMEPRAZOLE [Concomitant]
  14. BUMETANIDE [Concomitant]
  15. PERSANTIN [Concomitant]
  16. RIFAMPIN [Concomitant]

REACTIONS (4)
  - BLOOD CREATINE PHOSPHOKINASE INCREASED [None]
  - BLOOD CREATININE INCREASED [None]
  - DIARRHOEA [None]
  - NAUSEA [None]
